FAERS Safety Report 11073674 (Version 1)
Quarter: 2015Q2

REPORT INFORMATION
  Report Type: Spontaneous
  Country: FR (occurrence: FR)
  Receive Date: 20150428
  Receipt Date: 20150428
  Transmission Date: 20150821
  Serious: Yes (Other)
  Sender: FDA-Public Use
  Company Number: PHHY2015FR048067

PATIENT
  Age: 12 Year
  Sex: Male

DRUGS (1)
  1. VALPROATE SODIUM. [Suspect]
     Active Substance: VALPROATE SODIUM
     Indication: PRODUCT USED FOR UNKNOWN INDICATION
     Route: 064

REACTIONS (10)
  - Myopia [Unknown]
  - Autism [Unknown]
  - Speech disorder [Unknown]
  - Hypospadias [Unknown]
  - Motor dysfunction [Unknown]
  - Deafness [Unknown]
  - Fall [Unknown]
  - Emotional disorder of childhood [Unknown]
  - Dyspraxia [Unknown]
  - Disturbance in attention [Unknown]
